FAERS Safety Report 4906432-7 (Version None)
Quarter: 2006Q1

REPORT INFORMATION
  Report Type: 
  Country: None (occurrence: None)
  Receive Date: 20060206
  Receipt Date: 20060123
  Transmission Date: 20060701
  Serious: Yes (Hospitalization)
  Sender: FDA-Public Use
  Company Number: PERC20060005

PATIENT
  Age: 77 Year
  Sex: Male
  Weight: 93.6 kg

DRUGS (5)
  1. PERCOCET [Suspect]
     Indication: CANCER PAIN
     Dosage: PO
     Route: 048
     Dates: end: 20051101
  2. OXYCONTIN [Suspect]
     Indication: CANCER PAIN
     Dates: end: 20051101
  3. WARFARIN SODIUM [Concomitant]
  4. TOPROL [Concomitant]
  5. HYDROCHLOROTHIAZIDE [Concomitant]

REACTIONS (23)
  - AGGRESSION [None]
  - ASTHENIA [None]
  - CARDIOMEGALY [None]
  - CONFUSIONAL STATE [None]
  - DEHYDRATION [None]
  - DELIRIUM [None]
  - DEMENTIA [None]
  - DILATATION ATRIAL [None]
  - DILATATION VENTRICULAR [None]
  - DISEASE PROGRESSION [None]
  - DYSURIA [None]
  - EJECTION FRACTION DECREASED [None]
  - FALL [None]
  - HEART RATE IRREGULAR [None]
  - LETHARGY [None]
  - MENTAL STATUS CHANGES [None]
  - METASTATIC MALIGNANT MELANOMA [None]
  - MITRAL VALVE INCOMPETENCE [None]
  - ORAL INTAKE REDUCED [None]
  - PULMONARY HYPERTENSION [None]
  - TRICUSPID VALVE INCOMPETENCE [None]
  - URINARY RETENTION [None]
  - VENTRICULAR HYPOKINESIA [None]
